FAERS Safety Report 20739261 (Version 2)
Quarter: 2022Q2

REPORT INFORMATION
  Report Type: Spontaneous
  Country: ES (occurrence: ES)
  Receive Date: 20220422
  Receipt Date: 20220429
  Transmission Date: 20220721
  Serious: Yes (Hospitalization, Other)
  Sender: FDA-Public Use
  Company Number: ES-NOVARTISPH-PHBS1999ES10933

PATIENT
  Age: 40 Year
  Sex: Female

DRUGS (6)
  1. CLOMIPRAMINE [Suspect]
     Active Substance: CLOMIPRAMINE
     Indication: Depression
     Dosage: 50 MG (25 MG, 2X/DAY)
     Route: 065
  2. CLOMIPRAMINE [Suspect]
     Active Substance: CLOMIPRAMINE
     Indication: Anxiety disorder
  3. SERTRALINE HYDROCHLORIDE [Suspect]
     Active Substance: SERTRALINE HYDROCHLORIDE
     Indication: Depression
     Dosage: 50 MG, QD
     Route: 065
  4. SERTRALINE HYDROCHLORIDE [Suspect]
     Active Substance: SERTRALINE HYDROCHLORIDE
     Indication: Anxiety disorder
  5. ALPRAZOLAM [Concomitant]
     Active Substance: ALPRAZOLAM
     Indication: Depression
     Dosage: 1 MG, DAILY
     Route: 065
  6. ALPRAZOLAM [Concomitant]
     Active Substance: ALPRAZOLAM
     Indication: Anxiety disorder

REACTIONS (7)
  - Rash morbilliform [Recovered/Resolved]
  - Liver disorder [Recovered/Resolved]
  - Eosinophilic pneumonia acute [Recovered/Resolved]
  - Hepatic enzyme increased [Recovered/Resolved]
  - Lung infiltration [Unknown]
  - Dyspnoea [Unknown]
  - Pyrexia [Unknown]
